FAERS Safety Report 8923554 (Version 1)
Quarter: 2012Q4

REPORT INFORMATION
  Report Type: Spontaneous
  Country: US (occurrence: None)
  Receive Date: 20121115
  Receipt Date: 20121115
  Transmission Date: 20130627
  Serious: No
  Sender: FDA-Public Use
  Company Number: None

PATIENT
  Age: 64 Year
  Sex: Female
  Weight: 44.45 kg

DRUGS (9)
  1. DICLOFENAC [Suspect]
     Dates: start: 20110421, end: 20110525
  2. ASPIRIN [Concomitant]
  3. PRILOSEC [Concomitant]
  4. HYDROCHLORATHIAZIDE [Concomitant]
  5. PRAVASTATIN [Concomitant]
  6. CLONIDINE HCL [Concomitant]
  7. AMITRYPTILLINE [Concomitant]
  8. TYLENOL [Concomitant]
  9. FLEXIRIL [Concomitant]

REACTIONS (6)
  - Drug-induced liver injury [None]
  - Nausea [None]
  - Vomiting [None]
  - Decreased appetite [None]
  - Oedema [None]
  - Fatigue [None]
